FAERS Safety Report 5633095-8 (Version None)
Quarter: 2008Q1

REPORT INFORMATION
  Report Type: 
  Country: None (occurrence: None)
  Receive Date: 20080215
  Receipt Date: 20071127
  Transmission Date: 20080703
  Serious: Yes (Other)
  Sender: FDA-Public Use
  Company Number: 2007S1012514

PATIENT
  Sex: Male

DRUGS (3)
  1. AZATHIOPRINE [Suspect]
     Indication: ARTHRITIS
     Dosage: 100 MG; TWICE A DAY
  2. CYCLOSPORINE [Concomitant]
  3. METHOTREXATE [Concomitant]

REACTIONS (1)
  - BLOOD DISORDER [None]
